FAERS Safety Report 8802822 (Version 1)
Quarter: 2012Q4

REPORT INFORMATION
  Report Type: 
  Country: IT (occurrence: IT)
  Receive Date: 20120921
  Receipt Date: 20120921
  Transmission Date: 20130627
  Serious: No
  Sender: FDA-Public Use
  Company Number: IT-009507513-1209ITA008732

PATIENT
  Age: 37 Year
  Sex: Female

DRUGS (2)
  1. SYCREST [Suspect]
     Indication: BIPOLAR DISORDER
     Dosage: 10 mg, qd
     Route: 060
  2. LITHIUM [Concomitant]
     Indication: BIPOLAR DISORDER
     Dosage: 1320, mg, qd

REACTIONS (4)
  - Blood pressure decreased [Unknown]
  - Myalgia [Not Recovered/Not Resolved]
  - Fatigue [Not Recovered/Not Resolved]
  - Dysgeusia [Unknown]
